FAERS Safety Report 5060452-3 (Version None)
Quarter: 2006Q2

REPORT INFORMATION
  Report Type: 
  Country: None (occurrence: None)
  Receive Date: 20060630
  Receipt Date: 20060404
  Transmission Date: 20061013
  Serious: Yes (Life-Threatening, Hospitalization)
  Sender: FDA-Public Use
  Company Number: A03200602026

PATIENT
  Age: 83 Year
  Sex: Male
  Weight: 74.8435 kg

DRUGS (3)
  1. AMBIEN [Suspect]
     Indication: SLEEP DISORDER
     Dosage: ORAL
     Route: 048
     Dates: start: 20060322, end: 20060326
  2. ALCOHOL - LIQUID [Suspect]
     Dosage: ONE SHOT SIZE BOTTLE EACH NIGHT ORAL
     Route: 048
  3. ALCOHOL - LIQUID [Suspect]
     Dosage: ORAL

REACTIONS (3)
  - DEPRESSION [None]
  - SLEEP WALKING [None]
  - SUICIDE ATTEMPT [None]
